FAERS Safety Report 14295846 (Version 1)
Quarter: 2017Q4

REPORT INFORMATION
  Report Type: Spontaneous
  Country: CH (occurrence: CH)
  Receive Date: 20171218
  Receipt Date: 20171218
  Transmission Date: 20180321
  Serious: Yes (Hospitalization)
  Sender: FDA-Public Use
  Company Number: PHHY2017CH180632

PATIENT
  Sex: Female

DRUGS (2)
  1. CAPECITABINE. [Suspect]
     Active Substance: CAPECITABINE
     Indication: METASTASIS
     Route: 065
  2. TYVERB [Suspect]
     Active Substance: LAPATINIB
     Indication: METASTASIS
     Route: 065

REACTIONS (1)
  - Gastrointestinal disorder [Unknown]
